FAERS Safety Report 4356509-2 (Version None)
Quarter: 2004Q2

REPORT INFORMATION
  Report Type: 
  Country: None (occurrence: None)
  Receive Date: 20040506
  Receipt Date: 20420428
  Transmission Date: 20050107
  Serious: Yes (Life-Threatening)
  Sender: FDA-Public Use
  Company Number: 2004210967FR

PATIENT
  Age: 48 Year
  Sex: Female

DRUGS (5)
  1. XANAX [Suspect]
  2. MEPRONIZINE (MEPROBAMATE, ACEPROMETAZINE) [Suspect]
  3. THERALENE (ALIMEMAZINE TARTRATE) [Suspect]
  4. MORPHINE SULFATE [Suspect]
     Dosage: 40 MG/DAY, IV
     Route: 042
  5. CITALOPRAM HYDROBROMIDE [Suspect]
     Dosage: SEE IMAGE
     Dates: start: 20040225, end: 20040309

REACTIONS (7)
  - CARDIO-RESPIRATORY ARREST [None]
  - COMA [None]
  - DRUG INTERACTION [None]
  - MUSCULOSKELETAL STIFFNESS [None]
  - OXYGEN SATURATION DECREASED [None]
  - PUPILLARY DISORDER [None]
  - TRISMUS [None]
